FAERS Safety Report 15832347 (Version 1)
Quarter: 2019Q1

REPORT INFORMATION
  Report Type: Report from Study
  Country: FR (occurrence: FR)
  Receive Date: 20190116
  Receipt Date: 20190116
  Transmission Date: 20190417
  Serious: Yes (Life-Threatening, Hospitalization)
  Sender: FDA-Public Use
  Company Number: FR-TEVA-2019-FR-998499

PATIENT
  Age: 67 Year
  Sex: Female

DRUGS (5)
  1. RIBAVIRIN. [Suspect]
     Active Substance: RIBAVIRIN
     Indication: CHRONIC HEPATITIS C
     Route: 065
     Dates: start: 2003
  2. DACLATASVIR. [Suspect]
     Active Substance: DACLATASVIR
     Indication: CHRONIC HEPATITIS C
     Dosage: 60 MILLIGRAM DAILY;
     Route: 048
     Dates: start: 20130906, end: 20130920
  3. ALDACTONE [Concomitant]
     Active Substance: SPIRONOLACTONE
     Dates: start: 201303
  4. ASUNAPREVIR [Suspect]
     Active Substance: ASUNAPREVIR
     Indication: CHRONIC HEPATITIS C
     Dosage: 200 MILLIGRAM DAILY;
     Route: 048
     Dates: start: 20130906, end: 20130920
  5. PROPRANOLOL [Concomitant]
     Active Substance: PROPRANOLOL HYDROCHLORIDE

REACTIONS (4)
  - Spinal cord haemorrhage [Recovered/Resolved with Sequelae]
  - Traumatic spinal cord compression [Recovered/Resolved with Sequelae]
  - Guillain-Barre syndrome [Recovering/Resolving]
  - Respiratory failure [Recovering/Resolving]

NARRATIVE: CASE EVENT DATE: 201309
